FAERS Safety Report 7463140-9 (Version None)
Quarter: 2011Q2

REPORT INFORMATION
  Report Type: 
  Country: None (occurrence: None)
  Receive Date: 20110506
  Receipt Date: 20110502
  Transmission Date: 20111010
  Serious: Yes (Hospitalization, Other)
  Sender: FDA-Public Use
  Company Number: US-PFIZER INC-2011038282

PATIENT
  Sex: Female

DRUGS (4)
  1. GEODON [Concomitant]
     Dosage: UNK
     Dates: start: 20070910, end: 20080404
  2. CELEXA [Concomitant]
     Indication: DEPRESSION
     Dosage: UNK
     Dates: start: 20070917, end: 20100817
  3. CHANTIX [Suspect]
     Indication: SMOKING CESSATION THERAPY
     Dosage: ONE PER DAY
     Dates: start: 20080305, end: 20080412
  4. RISPERDAL [Concomitant]
     Indication: MOOD ALTERED
     Dosage: UNK
     Dates: start: 20070917, end: 20080906

REACTIONS (7)
  - INTENTIONAL OVERDOSE [None]
  - SUICIDE ATTEMPT [None]
  - DEPRESSION [None]
  - ANXIETY [None]
  - NIGHTMARE [None]
  - EATING DISORDER [None]
  - PANIC ATTACK [None]
